FAERS Safety Report 12200616 (Version 1)
Quarter: 2016Q1

REPORT INFORMATION
  Report Type: Spontaneous
  Country: US (occurrence: US)
  Receive Date: 20160322
  Receipt Date: 20160322
  Transmission Date: 20160526
  Serious: Yes (Hospitalization, Other)
  Sender: FDA-Public Use
  Company Number: US-SA-2016SA025370

PATIENT
  Age: 71 Year

DRUGS (1)
  1. LEUKINE [Suspect]
     Active Substance: SARGRAMOSTIM
     Indication: PLASMA CELL MYELOMA
     Dosage: ROUTE: SQ
     Route: 058
     Dates: start: 20111027, end: 20111107

REACTIONS (2)
  - Respiratory failure [Unknown]
  - Pneumonia legionella [Recovered/Resolved]

NARRATIVE: CASE EVENT DATE: 20111102
